FAERS Safety Report 9852984 (Version 3)
Quarter: 2014Q2

REPORT INFORMATION
  Report Type: Spontaneous
  Country: US (occurrence: US)
  Receive Date: 20140129
  Receipt Date: 20140507
  Transmission Date: 20141212
  Serious: Yes (Hospitalization, Other)
  Sender: FDA-Public Use
  Company Number: US-FRI-1000053192

PATIENT
  Age: 59 Year
  Sex: Male

DRUGS (5)
  1. LINZESS [Suspect]
     Indication: CONSTIPATION
     Dosage: 145 MCG
     Route: 048
     Dates: start: 201311, end: 201403
  2. RELISTOR [Concomitant]
     Indication: CONSTIPATION
  3. BABY ASPIRIN [Concomitant]
     Dosage: 81 MG
  4. OXYCODONE [Concomitant]
     Indication: BACK PAIN
     Dates: start: 2009
  5. OXYCONTIN [Concomitant]
     Indication: BACK PAIN
     Dates: start: 2009

REACTIONS (7)
  - Plasma cell myeloma [Not Recovered/Not Resolved]
  - Cyst [Recovered/Resolved]
  - Pyrexia [Recovered/Resolved]
  - Dry skin [Not Recovered/Not Resolved]
  - Nervousness [Not Recovered/Not Resolved]
  - Abdominal distension [Not Recovered/Not Resolved]
  - Constipation [Not Recovered/Not Resolved]
